FAERS Safety Report 16260694 (Version 2)
Quarter: 2019Q2

REPORT INFORMATION
  Report Type: Spontaneous
  Country: US (occurrence: US)
  Receive Date: 20190501
  Receipt Date: 20190606
  Transmission Date: 20190711
  Serious: Yes (Other)
  Sender: FDA-Public Use
  Company Number: US-PFIZER INC-2019181625

PATIENT
  Age: 40 Year
  Sex: Male

DRUGS (1)
  1. DIFLUCAN [Suspect]
     Active Substance: FLUCONAZOLE
     Indication: RENAL TRANSPLANT
     Dosage: 100 MG, 1X/DAY
     Route: 048
     Dates: start: 2008

REACTIONS (5)
  - Suicidal ideation [Unknown]
  - Product use in unapproved indication [Unknown]
  - Underweight [Unknown]
  - Off label use [Unknown]
  - Depression [Unknown]
